FAERS Safety Report 6275725-6 (Version None)
Quarter: 2009Q3

REPORT INFORMATION
  Report Type: 
  Country: None (occurrence: None)
  Receive Date: 20090721
  Receipt Date: 20090716
  Transmission Date: 20100115
  Serious: Yes (Life-Threatening, Hospitalization)
  Sender: FDA-Public Use
  Company Number: PHHY2009JP29880

PATIENT
  Sex: Male

DRUGS (2)
  1. DIOVAN [Suspect]
     Dosage: 80 MG, QD
     Route: 048
     Dates: start: 20080705
  2. DIOVAN [Suspect]
     Dosage: 40 MG, QD
     Route: 048
     Dates: end: 20090311

REACTIONS (2)
  - GASTRIC CANCER [None]
  - GASTRIC OPERATION [None]
